FAERS Safety Report 9265791 (Version 1)
Quarter: 2013Q2

REPORT INFORMATION
  Report Type: Spontaneous
  Country: US (occurrence: US)
  Receive Date: 20130501
  Receipt Date: 20130501
  Transmission Date: 20140414
  Serious: Yes (Other)
  Sender: FDA-Public Use
  Company Number: US-GLAXOSMITHKLINE-A1021653A

PATIENT
  Age: 76 Year
  Sex: Female

DRUGS (2)
  1. HORIZANT [Suspect]
     Indication: POST HERPETIC NEURALGIA
     Dosage: 600MG TWICE PER DAY
     Route: 048
     Dates: start: 20130309, end: 20130401
  2. LORAZEPAM [Concomitant]

REACTIONS (5)
  - Suicidal ideation [Recovering/Resolving]
  - Irritability [Recovering/Resolving]
  - Depression [Recovering/Resolving]
  - Abdominal distension [Recovering/Resolving]
  - Pruritus [Recovering/Resolving]
